FAERS Safety Report 14138569 (Version 1)
Quarter: 2017Q4

REPORT INFORMATION
  Report Type: Report from Study
  Country: GB (occurrence: GB)
  Receive Date: 20171027
  Receipt Date: 20171027
  Transmission Date: 20180321
  Serious: Yes (Life-Threatening, Other)
  Sender: FDA-Public Use
  Company Number: PHHY2017GB157346

PATIENT
  Age: 64 Year
  Sex: Male

DRUGS (3)
  1. MIDAZOLAM [Concomitant]
     Active Substance: MIDAZOLAM HYDROCHLORIDE
     Indication: MUSCLE TWITCHING
     Route: 065
  2. SANDOSTATIN LAR DEPOT [Suspect]
     Active Substance: OCTREOTIDE ACETATE
     Indication: NEUROENDOCRINE TUMOUR
     Dosage: 30 MG, UNK
     Route: 030
     Dates: end: 201709
  3. MORPHINE [Concomitant]
     Active Substance: MORPHINE
     Indication: MUSCLE TWITCHING
     Route: 030

REACTIONS (4)
  - Injection site pain [Unknown]
  - Malaise [Unknown]
  - Confusional state [Unknown]
  - Cachexia [Unknown]

NARRATIVE: CASE EVENT DATE: 201709
